FAERS Safety Report 22534942 (Version 6)
Quarter: 2023Q4

REPORT INFORMATION
  Report Type: Spontaneous
  Country: US (occurrence: US)
  Receive Date: 20230608
  Receipt Date: 20231228
  Transmission Date: 20240109
  Serious: No
  Sender: FDA-Public Use
  Company Number: US-BRISTOL-MYERS SQUIBB COMPANY-2023-080554

PATIENT
  Age: 78 Year
  Sex: Female

DRUGS (2)
  1. REVLIMID [Suspect]
     Active Substance: LENALIDOMIDE
     Indication: Plasma cell myeloma
     Dosage: FREQUENCY: DAILY FOR 21 DAYS
     Route: 048
  2. REVLIMID [Suspect]
     Active Substance: LENALIDOMIDE
     Dosage: FREQUENCY: DAILY FOR 21 DAYS AND 7 DAYS OFF?STRENGTH: 15MG
     Route: 048
     Dates: start: 20230509

REACTIONS (10)
  - Rash [Recovered/Resolved]
  - Cold sweat [Unknown]
  - Rash pruritic [Recovered/Resolved]
  - Night sweats [Unknown]
  - Dry eye [Unknown]
  - Fatigue [Unknown]
  - Product prescribing issue [Unknown]
  - Skin discolouration [Unknown]
  - Skin disorder [Unknown]
  - Product dose omission issue [Unknown]

NARRATIVE: CASE EVENT DATE: 20230828
